FAERS Safety Report 10142848 (Version 1)
Quarter: 2014Q2

REPORT INFORMATION
  Report Type: Spontaneous
  Country: US (occurrence: None)
  Receive Date: 20140428
  Receipt Date: 20140428
  Transmission Date: 20141212
  Serious: Yes (Death)
  Sender: FDA-Public Use
  Company Number: SP07732

PATIENT
  Age: 73 Year
  Sex: Female

DRUGS (1)
  1. RELISTOR [Suspect]
     Indication: CONSTIPATION
     Dosage: AS NEEDED
     Route: 058

REACTIONS (1)
  - Needle issue [None]
